FAERS Safety Report 5115513-7 (Version None)
Quarter: 2006Q3

REPORT INFORMATION
  Report Type: 
  Country: None (occurrence: None)
  Receive Date: 20060927
  Receipt Date: 20060915
  Transmission Date: 20061208
  Serious: Yes (Hospitalization, Other)
  Sender: FDA-Public Use
  Company Number: US-BAYER-200615674BWH

PATIENT
  Age: 72 Year
  Sex: Male

DRUGS (12)
  1. AVELOX [Suspect]
     Indication: SINUSITIS
     Route: 048
     Dates: start: 20060401, end: 20060501
  2. CORICIDIN [Interacting]
     Indication: DRUG USE FOR UNKNOWN INDICATION
     Dates: start: 20060501
  3. VANCOMYCIN [Concomitant]
  4. LORAZEPAM [Concomitant]
  5. PROMETHAZINE [Concomitant]
  6. TAMSULOSIN HCL [Concomitant]
  7. METOPROLOL [Concomitant]
  8. WARFARIN SODIUM [Concomitant]
  9. SACCHAROMYCES BOULARDII [Concomitant]
  10. NPH INSULIN [Concomitant]
  11. AVANDIA [Concomitant]
     Indication: DIABETES MELLITUS NON-INSULIN-DEPENDENT
     Route: 048
     Dates: start: 20060801
  12. AVANDRYL [Concomitant]
     Indication: DIABETES MELLITUS
     Route: 048
     Dates: start: 20060824

REACTIONS (10)
  - CLOSTRIDIAL INFECTION [None]
  - CYSTITIS [None]
  - DIARRHOEA [None]
  - DRUG INTERACTION [None]
  - HEART RATE INCREASED [None]
  - HYPERHIDROSIS [None]
  - PNEUMONIA [None]
  - PYREXIA [None]
  - RASH GENERALISED [None]
  - SINUSITIS [None]
